FAERS Safety Report 20788498 (Version 1)
Quarter: 2022Q2

REPORT INFORMATION
  Report Type: Spontaneous
  Country: US (occurrence: US)
  Receive Date: 20220505
  Receipt Date: 20220505
  Transmission Date: 20220721
  Serious: No
  Sender: FDA-Public Use
  Company Number: US-BRISTOL-MYERS SQUIBB COMPANY-2022-013045

PATIENT
  Age: 65 Year
  Sex: Male
  Weight: 88 kg

DRUGS (1)
  1. POMALYST [Suspect]
     Active Substance: POMALIDOMIDE
     Indication: Plasma cell myeloma
     Dosage: FREQUENCY; 3WEEKS ON AND ONE WEEK OFF
     Route: 048
     Dates: start: 20220222

REACTIONS (1)
  - Nausea [Unknown]
